FAERS Safety Report 4695658-6 (Version None)
Quarter: 2005Q2

REPORT INFORMATION
  Report Type: 
  Country: None (occurrence: None)
  Receive Date: 20050617
  Receipt Date: 20050617
  Transmission Date: 20051028
  Serious: Yes (Life-Threatening, Hospitalization)
  Sender: FDA-Public Use
  Company Number: None

PATIENT
  Age: 49 Year
  Sex: Female
  Weight: 40.8237 kg

DRUGS (1)
  1. ACTONEL [Suspect]
     Indication: OSTEOPOROSIS
     Dosage: 35 MG Q WEEK PO
     Route: 048
     Dates: start: 20040901, end: 20050401

REACTIONS (3)
  - CHEST PAIN [None]
  - DYSPNOEA [None]
  - VENTRICULAR ARRHYTHMIA [None]
